FAERS Safety Report 20092053 (Version 1)
Quarter: 2021Q4

REPORT INFORMATION
  Report Type: Spontaneous
  Country: BR (occurrence: BR)
  Receive Date: 20211119
  Receipt Date: 20211119
  Transmission Date: 20220303
  Serious: Yes (Disabling, Other)
  Sender: FDA-Public Use
  Company Number: BR-ABBVIE-21K-020-4165476-00

PATIENT
  Age: 35 Year
  Sex: Female
  Weight: 51 kg

DRUGS (7)
  1. VALPROATE SODIUM [Suspect]
     Active Substance: VALPROATE SODIUM
     Indication: Seizure
     Dosage: 2 ML IN THE MORNING AND 2 ML IN NIGHT
     Route: 048
  2. PURAN [Suspect]
     Active Substance: LEVOTHYROXINE SODIUM
     Indication: Hyperthyroidism
     Route: 065
     Dates: start: 2004
  3. SIMVASTATIN [Concomitant]
     Active Substance: SIMVASTATIN
     Indication: Osteopenia
  4. CHOLECALCIFEROL [Concomitant]
     Active Substance: CHOLECALCIFEROL
     Indication: Osteopenia
  5. LANTUS [Concomitant]
     Active Substance: INSULIN GLARGINE
     Indication: Product used for unknown indication
     Dates: start: 2012
  6. INSULIN NOS [Concomitant]
     Active Substance: INSULIN NOS
     Indication: Product used for unknown indication
  7. LEVOTHYROXINE [Concomitant]
     Active Substance: LEVOTHYROXINE
     Indication: Product used for unknown indication

REACTIONS (6)
  - Drug dependence [Unknown]
  - Hypokinesia [Unknown]
  - Product use issue [Unknown]
  - Drug ineffective [Unknown]
  - Seizure [Unknown]
  - Osteopenia [Unknown]
